FAERS Safety Report 25951508 (Version 2)
Quarter: 2025Q4

REPORT INFORMATION
  Report Type: Spontaneous
  Country: EU (occurrence: EU)
  Receive Date: 20251023
  Receipt Date: 20251107
  Transmission Date: 20260117
  Serious: Yes (Life-Threatening, Hospitalization)
  Sender: TEVA
  Company Number: EU-TEVA-VS-3383255

PATIENT
  Age: 69 Year
  Sex: Female

DRUGS (7)
  1. TACROLIMUS [Suspect]
     Active Substance: TACROLIMUS
     Indication: Immunosuppressant drug therapy
     Route: 065
  2. MYCOPHENOLATE MOFETIL [Suspect]
     Active Substance: MYCOPHENOLATE MOFETIL
     Indication: Immunosuppressant drug therapy
     Route: 065
  3. ALLOPURINOL [Concomitant]
     Active Substance: ALLOPURINOL
     Indication: Chronic kidney disease
     Route: 065
  4. PANTOPRAZOLE [Concomitant]
     Active Substance: PANTOPRAZOLE
     Indication: Product used for unknown indication
     Route: 065
  5. INSULIN NOS [Concomitant]
     Active Substance: INSULIN NOS
     Indication: Type 2 diabetes mellitus
     Dosage: SHORT ACTING
     Route: 065
  6. INSULIN NOS [Concomitant]
     Active Substance: INSULIN NOS
     Indication: Type 2 diabetes mellitus
     Dosage: LONG ACTING
     Route: 065
  7. AMLODIPINE [Concomitant]
     Active Substance: AMLODIPINE BESYLATE
     Indication: Product used for unknown indication
     Route: 065

REACTIONS (6)
  - Toxic shock syndrome streptococcal [Recovered/Resolved]
  - Respiratory disorder [Recovered/Resolved]
  - Nephropathy toxic [Recovering/Resolving]
  - Stridor [Recovered/Resolved]
  - Acute kidney injury [Recovering/Resolving]
  - Chronic kidney disease [Recovering/Resolving]
